FAERS Safety Report 7131162-3 (Version None)
Quarter: 2010Q4

REPORT INFORMATION
  Report Type: 
  Country: None (occurrence: None)
  Receive Date: 20101124
  Receipt Date: 20101124
  Transmission Date: 20110411
  Serious: Yes (Life-Threatening)
  Sender: FDA-Public Use
  Company Number: None

PATIENT
  Sex: Male
  Weight: 65.7716 kg

DRUGS (1)
  1. CEFTRIAXONE [Suspect]
     Indication: PNEUMONITIS
     Dosage: 1GM IM
     Route: 030

REACTIONS (3)
  - CHEST DISCOMFORT [None]
  - LIP SWELLING [None]
  - RASH ERYTHEMATOUS [None]
